FAERS Safety Report 5042580-1 (Version None)
Quarter: 2006Q2

REPORT INFORMATION
  Report Type: 
  Country: None (occurrence: None)
  Receive Date: 20060627
  Receipt Date: 20060614
  Transmission Date: 20061013
  Serious: Yes (Life-Threatening, Hospitalization, Disabling, Other)
  Sender: FDA-Public Use
  Company Number: 2006062236

PATIENT
  Age: 61 Year
  Sex: Male
  Weight: 67.2 kg

DRUGS (10)
  1. SUTENT [Suspect]
     Indication: METASTATIC RENAL CELL CARCINOMA
     Dosage: 50 MG (50 MG, 1 IN 1 D), ORAL
     Route: 048
     Dates: start: 20060505
  2. GLYBURIDE [Concomitant]
  3. ATENOLOL [Concomitant]
  4. MINOXIDIL [Concomitant]
  5. CALCIUM ACETATE (CALCIUM ACETATE) [Concomitant]
  6. METFORMIN [Concomitant]
  7. ENALAPRIL MALEATE [Concomitant]
  8. FUROSEMIDE [Concomitant]
  9. IRBESARTAN [Concomitant]
  10. FERROUS SULFATE TAB [Concomitant]

REACTIONS (15)
  - ALANINE AMINOTRANSFERASE INCREASED [None]
  - ASPARTATE AMINOTRANSFERASE INCREASED [None]
  - CACHEXIA [None]
  - CONFUSIONAL STATE [None]
  - DEVICE RELATED INFECTION [None]
  - DIALYSIS [None]
  - DYSPNOEA [None]
  - HEMIPARESIS [None]
  - HEPATOTOXICITY [None]
  - METASTASES TO CENTRAL NERVOUS SYSTEM [None]
  - OPPORTUNISTIC INFECTION [None]
  - RENAL FAILURE ACUTE [None]
  - RESPIRATORY TRACT INFECTION [None]
  - THROMBOCYTOPENIA [None]
  - TUMOUR LYSIS SYNDROME [None]
